FAERS Safety Report 9237982 (Version 1)
Quarter: 2013Q1

REPORT INFORMATION
  Report Type: Spontaneous
  Country: US (occurrence: None)
  Receive Date: 20130327
  Receipt Date: 20130327
  Transmission Date: 20140127
  Serious: Yes (Other)
  Sender: FDA-Public Use
  Company Number: 2013035140

PATIENT
  Sex: Female

DRUGS (1)
  1. BERINERT-P [Suspect]

REACTIONS (1)
  - Cerebrovascular accident [None]
